FAERS Safety Report 6219758-4 (Version None)
Quarter: 2009Q2

REPORT INFORMATION
  Report Type: 
  Country: None (occurrence: None)
  Receive Date: 20090609
  Receipt Date: 20090601
  Transmission Date: 20091009
  Serious: Yes (Hospitalization)
  Sender: FDA-Public Use
  Company Number: A0774611A

PATIENT
  Age: 63 Year
  Sex: Female

DRUGS (7)
  1. PAXIL CR [Suspect]
     Indication: BIPOLAR DISORDER
     Dosage: 25MG PER DAY
     Route: 048
     Dates: start: 19910101
  2. VALTREX [Suspect]
     Dosage: 2000MG PER DAY
     Route: 048
     Dates: start: 20000101
  3. SEROQUEL [Suspect]
     Indication: BIPOLAR DISORDER
     Route: 065
     Dates: start: 20040101
  4. FLAXSEED OIL [Concomitant]
     Dosage: 1000MG PER DAY
  5. KLONOPIN [Concomitant]
     Dosage: .5MG TWICE PER DAY
  6. COZAAR [Concomitant]
  7. THYROLAR [Concomitant]

REACTIONS (9)
  - BRONCHITIS [None]
  - CATARACT [None]
  - DRUG DEPENDENCE [None]
  - EMOTIONAL DISORDER [None]
  - HYPOMANIA [None]
  - INSOMNIA [None]
  - MALAISE [None]
  - PNEUMONIA [None]
  - PYREXIA [None]
